FAERS Safety Report 12545552 (Version 3)
Quarter: 2016Q3

REPORT INFORMATION
  Report Type: Spontaneous
  Country: JP (occurrence: JP)
  Receive Date: 20160711
  Receipt Date: 20160805
  Transmission Date: 20161109
  Serious: Yes (Death, Other)
  Sender: FDA-Public Use
  Company Number: JP-ABBVIE-16K-087-1643522-00

PATIENT
  Age: 75 Year
  Sex: Male
  Weight: 54 kg

DRUGS (14)
  1. CALCIUM LACTATE [Concomitant]
     Active Substance: CALCIUM LACTATE
     Indication: OSTEOPOROSIS
     Route: 048
     Dates: start: 20050926, end: 2016
  2. HUMIRA [Suspect]
     Active Substance: ADALIMUMAB
     Indication: RHEUMATOID ARTHRITIS
     Route: 058
     Dates: start: 20120420, end: 20160210
  3. METHOTREXATE. [Suspect]
     Active Substance: METHOTREXATE
     Indication: RHEUMATOID ARTHRITIS
     Route: 065
     Dates: start: 20110715, end: 20160220
  4. MINODRONIC ACID [Concomitant]
     Active Substance: MINODRONIC ACID
     Indication: OSTEOPOROSIS
     Dosage: 50 MG/MONTH
     Dates: start: 20130503, end: 20160201
  5. ALFACALCIDOL [Concomitant]
     Active Substance: ALFACALCIDOL
     Indication: OSTEOPOROSIS
     Route: 048
     Dates: start: 20061227, end: 2016
  6. FERROUS CITRATE NA [Concomitant]
     Active Substance: SODIUM FERROUS CITRATE
     Indication: ANAEMIA
     Route: 048
     Dates: start: 20021011, end: 20160305
  7. LIMAPROST ALFADEX [Concomitant]
     Active Substance: LIMAPROST
     Indication: LUMBAR SPINAL STENOSIS
     Route: 048
     Dates: start: 20150820, end: 2016
  8. MELOXICAM. [Concomitant]
     Active Substance: MELOXICAM
     Indication: RHEUMATOID ARTHRITIS
     Dates: start: 20020918, end: 20160418
  9. KETOPROFEN. [Concomitant]
     Active Substance: KETOPROFEN
     Indication: ARTHRALGIA
     Dosage: 1-2 DOSASGE FORMS
     Route: 062
     Dates: start: 20070516, end: 20160223
  10. MISOPROSTOL. [Concomitant]
     Active Substance: MISOPROSTOL
     Indication: PROPHYLAXIS AGAINST GASTROINTESTINAL ULCER
     Route: 048
     Dates: start: 20060222, end: 2016
  11. FOLIC ACID. [Concomitant]
     Active Substance: FOLIC ACID
     Indication: PROPHYLAXIS
     Dates: start: 20050720, end: 20160222
  12. FOLIC ACID. [Concomitant]
     Active Substance: FOLIC ACID
     Indication: ADVERSE REACTION
  13. MECOBALAMIN [Concomitant]
     Active Substance: METHYLCOBALAMIN
     Indication: LUMBAR SPINAL STENOSIS
     Route: 048
     Dates: start: 20051130, end: 2016
  14. KETOPROFEN. [Concomitant]
     Active Substance: KETOPROFEN
     Indication: BACK PAIN

REACTIONS (19)
  - Disseminated intravascular coagulation [Fatal]
  - Wheezing [Unknown]
  - Immunodeficiency [Unknown]
  - Arthralgia [Unknown]
  - Psoas abscess [Fatal]
  - Faeces discoloured [Unknown]
  - Bacteraemia [Unknown]
  - Pain [Unknown]
  - Staphylococcal infection [Unknown]
  - Sepsis [Fatal]
  - Upper gastrointestinal haemorrhage [Unknown]
  - Muscle swelling [Unknown]
  - Generalised oedema [Unknown]
  - Flatulence [Unknown]
  - Pleural effusion [Unknown]
  - Spondylitis [Unknown]
  - Purulence [Unknown]
  - Ascites [Unknown]
  - Depressed level of consciousness [Not Recovered/Not Resolved]

NARRATIVE: CASE EVENT DATE: 20160220
